FAERS Safety Report 9165458 (Version 5)
Quarter: 2017Q2

REPORT INFORMATION
  Report Type: Spontaneous
  Country: US (occurrence: US)
  Receive Date: 20130315
  Receipt Date: 20170523
  Transmission Date: 20170830
  Serious: Yes (Other)
  Sender: FDA-Public Use
  Company Number: US-009507513-1303USA006773

PATIENT
  Sex: Male

DRUGS (1)
  1. PROPECIA [Suspect]
     Active Substance: FINASTERIDE
     Indication: ALOPECIA
     Dosage: 1 MG, QD
     Route: 048
     Dates: start: 200611, end: 20111216

REACTIONS (28)
  - Depression [Not Recovered/Not Resolved]
  - Osteochondrosis [Unknown]
  - Paranoia [Recovering/Resolving]
  - Erectile dysfunction [Not Recovered/Not Resolved]
  - Eye injury [Recovering/Resolving]
  - Ecchymosis [Unknown]
  - Dry eye [Unknown]
  - Hand fracture [Unknown]
  - Ligament sprain [Unknown]
  - Semen volume decreased [Unknown]
  - Myopia [Unknown]
  - Vision blurred [Unknown]
  - Drug administration error [Unknown]
  - Sexual dysfunction [Not Recovered/Not Resolved]
  - Visual field defect [Recovering/Resolving]
  - Panic attack [Not Recovered/Not Resolved]
  - Substance use [Unknown]
  - Vitreous floaters [Recovering/Resolving]
  - Anxiety [Recovering/Resolving]
  - Acne [Unknown]
  - Clavicle fracture [Unknown]
  - Tonsillectomy [Unknown]
  - Lymphadenopathy [Not Recovered/Not Resolved]
  - Libido decreased [Unknown]
  - Diplopia [Recovering/Resolving]
  - Rhinitis allergic [Not Recovered/Not Resolved]
  - Adenoidectomy [Unknown]
  - Neurofibromatosis [Unknown]

NARRATIVE: CASE EVENT DATE: 200611
